FAERS Safety Report 24172640 (Version 1)
Quarter: 2024Q3

REPORT INFORMATION
  Report Type: Spontaneous
  Country: US (occurrence: None)
  Receive Date: 20240804
  Receipt Date: 20240804
  Transmission Date: 20241016
  Serious: Yes (Other)
  Sender: Public
  Company Number: None

PATIENT
  Age: 78 Year
  Sex: Female
  Weight: 72.9 kg

DRUGS (7)
  1. NAPROXEN [Suspect]
     Active Substance: NAPROXEN
     Indication: Arthralgia
     Dosage: OTHER QUANTITY : 1 TABLET(S);?FREQUENCY : TWICE A DAY;?
     Route: 048
     Dates: start: 20240723, end: 20240802
  2. NAPROXEN [Suspect]
     Active Substance: NAPROXEN
     Indication: Rotator cuff syndrome
  3. NAPROXEN [Suspect]
     Active Substance: NAPROXEN
     Indication: Rotator cuff syndrome
  4. LOSARTAN [Concomitant]
  5. AMLODIPINE [Concomitant]
  6. AMBIEN [Concomitant]
  7. nasal spray inhaler [Concomitant]

REACTIONS (1)
  - Rectal haemorrhage [None]

NARRATIVE: CASE EVENT DATE: 20240801
